FAERS Safety Report 6031256-X (Version None)
Quarter: 2009Q1

REPORT INFORMATION
  Report Type: 
  Country: None (occurrence: None)
  Receive Date: 20090108
  Receipt Date: 20090105
  Transmission Date: 20090719
  Serious: Yes (Hospitalization)
  Sender: FDA-Public Use
  Company Number: DE-BIOGENIDEC-2008BI017350

PATIENT
  Age: 42 Year
  Sex: Female
  Weight: 62 kg

DRUGS (2)
  1. AVONEX [Suspect]
     Indication: MULTIPLE SCLEROSIS
     Route: 030
     Dates: start: 20060201
  2. VENLAFAXINE HCL [Concomitant]
     Indication: ADJUSTMENT DISORDER
     Dates: start: 20080418

REACTIONS (6)
  - ADJUSTMENT DISORDER [None]
  - BREAST CANCER [None]
  - INFLUENZA LIKE ILLNESS [None]
  - INJECTION SITE PAIN [None]
  - MULTIPLE SCLEROSIS RELAPSE [None]
  - WHITE BLOOD CELL COUNT DECREASED [None]
